FAERS Safety Report 6099395-5 (Version None)
Quarter: 2009Q1

REPORT INFORMATION
  Report Type: 
  Country: None (occurrence: None)
  Receive Date: 20090226
  Receipt Date: 20090226
  Transmission Date: 20090719
  Serious: No
  Sender: FDA-Public Use
  Company Number: None

PATIENT
  Age: 63 Year
  Sex: Male
  Weight: 95.3 kg

DRUGS (1)
  1. GADOPENTETATE DIMEGLUMINE [Suspect]
     Indication: NUCLEAR MAGNETIC RESONANCE IMAGING BRAIN
     Dosage: 15 ML ONCE IV
     Route: 042
     Dates: start: 20081125, end: 20081125

REACTIONS (2)
  - DIZZINESS [None]
  - DYSPNOEA [None]
